FAERS Safety Report 26109597 (Version 1)
Quarter: 2025Q4

REPORT INFORMATION
  Report Type: Spontaneous
  Country: US (occurrence: US)
  Receive Date: 20251201
  Receipt Date: 20251201
  Transmission Date: 20260117
  Serious: Yes (Hospitalization)
  Sender: INCYTE
  Company Number: US-INCYTE CORPORATION-2025IN013235

PATIENT
  Age: 76 Year

DRUGS (1)
  1. JAKAFI [Suspect]
     Active Substance: RUXOLITINIB
     Indication: Anaplastic large cell lymphoma T- and null-cell types
     Dosage: 5 MILLIGRAM, QD

REACTIONS (2)
  - Ill-defined disorder [Unknown]
  - Off label use [Unknown]
